FAERS Safety Report 11646749 (Version 1)
Quarter: 2015Q4

REPORT INFORMATION
  Report Type: Spontaneous
  Country: US (occurrence: US)
  Receive Date: 20151020
  Receipt Date: 20151020
  Transmission Date: 20160304
  Serious: No
  Sender: FDA-Public Use
  Company Number: US-ROCHE-1601945

PATIENT
  Age: 67 Year
  Sex: Male
  Weight: 74.91 kg

DRUGS (2)
  1. ESBRIET [Suspect]
     Active Substance: PIRFENIDONE
     Indication: IDIOPATHIC PULMONARY FIBROSIS
     Dosage: 3 CAPSULES.
     Route: 048
     Dates: start: 20150625
  2. ESBRIET [Suspect]
     Active Substance: PIRFENIDONE
     Dosage: 6 CAP
     Route: 048
     Dates: start: 201506

REACTIONS (6)
  - Nausea [Recovered/Resolved]
  - Drug dose omission [Unknown]
  - Abdominal pain upper [Unknown]
  - Fatigue [Unknown]
  - Flatulence [Unknown]
  - Abdominal discomfort [Recovered/Resolved]

NARRATIVE: CASE EVENT DATE: 201506
